FAERS Safety Report 18308644 (Version 1)
Quarter: 2020Q3

REPORT INFORMATION
  Report Type: Spontaneous
  Country: FR (occurrence: FR)
  Receive Date: 20200924
  Receipt Date: 20200924
  Transmission Date: 20201103
  Serious: Yes (Other)
  Sender: FDA-Public Use
  Company Number: FR-MYLANLABS-2020M1082240

PATIENT
  Age: 44 Year
  Sex: Male

DRUGS (4)
  1. CLOZAPINE. [Suspect]
     Active Substance: CLOZAPINE
     Indication: SCHIZOPHRENIA
     Dosage: 300 MG, Q12H
     Route: 048
     Dates: start: 2018
  2. CLOPIXOL                           /00876703/ [Interacting]
     Active Substance: ZUCLOPENTHIXOL HYDROCHLORIDE
     Indication: SCHIZOPHRENIA
     Dosage: 150 MG, QD (50 MG?25 MG?50 MG?0)
     Route: 048
     Dates: start: 2018, end: 20200724
  3. DIAZEPAM. [Interacting]
     Active Substance: DIAZEPAM
     Indication: PSYCHOTIC DISORDER
     Dosage: 30 MG, QD
     Route: 048
     Dates: start: 2018, end: 20200724
  4. LOXAPINE. [Interacting]
     Active Substance: LOXAPINE
     Indication: PSYCHOTIC DISORDER
     Dosage: 150 MG, QD (50 MG?50MG?50MG?50MG ET 100 MG EN SI BESOIN AU COUCHER)
     Route: 048
     Dates: start: 2018, end: 20200902

REACTIONS (6)
  - Akathisia [Recovered/Resolved]
  - Salivary hypersecretion [Recovering/Resolving]
  - Somnolence [Recovering/Resolving]
  - Drug interaction [Unknown]
  - Dysarthria [Not Recovered/Not Resolved]
  - Weight increased [Recovering/Resolving]

NARRATIVE: CASE EVENT DATE: 201905
